FAERS Safety Report 5805245-1 (Version None)
Quarter: 2008Q3

REPORT INFORMATION
  Report Type: 
  Country: None (occurrence: None)
  Receive Date: 20080703
  Receipt Date: 20080626
  Transmission Date: 20090109
  Serious: Yes (Death)
  Sender: FDA-Public Use
  Company Number: FABR-1000282

PATIENT
  Age: 52 Year
  Sex: Male

DRUGS (2)
  1. FABRAZYME [Suspect]
     Indication: FABRY'S DISEASE
     Dosage: 85 MG, Q2W, INTRAVENOUS
     Route: 042
     Dates: start: 20050421
  2. FABRAZYME [Suspect]

REACTIONS (4)
  - DROWNING [None]
  - FALL [None]
  - MYOCARDIAL INFARCTION [None]
  - SUDDEN DEATH [None]
